FAERS Safety Report 13045204 (Version 1)
Quarter: 2016Q4

REPORT INFORMATION
  Report Type: Spontaneous
  Country: FR (occurrence: FR)
  Receive Date: 20161220
  Receipt Date: 20161220
  Transmission Date: 20170207
  Serious: Yes (Disabling)
  Sender: FDA-Public Use
  Company Number: FR-CONCORDIA PHARMACEUTICALS INC.-GSH201612-006461

PATIENT
  Age: 26 Year
  Sex: Female

DRUGS (5)
  1. IMUREL [Suspect]
     Active Substance: AZATHIOPRINE SODIUM
     Indication: MONONEURITIS
     Route: 048
     Dates: start: 201603
  2. PLAQUENIL [Suspect]
     Active Substance: HYDROXYCHLOROQUINE SULFATE
     Indication: SJOGREN^S SYNDROME
     Route: 048
     Dates: start: 201505
  3. LYRICA [Suspect]
     Active Substance: PREGABALIN
     Route: 048
     Dates: start: 20160101
  4. ENDOXAN [Suspect]
     Active Substance: CYCLOPHOSPHAMIDE
     Indication: MONONEURITIS
     Route: 042
     Dates: start: 201512, end: 201602
  5. PREDNISONE. [Suspect]
     Active Substance: PREDNISONE
     Indication: MONONEURITIS
     Route: 048
     Dates: start: 201512

REACTIONS (2)
  - Ejection fraction decreased [Not Recovered/Not Resolved]
  - Hypertrophic cardiomyopathy [Not Recovered/Not Resolved]

NARRATIVE: CASE EVENT DATE: 201610
